FAERS Safety Report 7750791-7 (Version None)
Quarter: 2011Q3

REPORT INFORMATION
  Report Type: 
  Country: None (occurrence: None)
  Receive Date: 20110914
  Receipt Date: 20110909
  Transmission Date: 20111222
  Serious: Yes (Death, Hospitalization, Other)
  Sender: FDA-Public Use
  Company Number: US-AMGEN-QUU431845

PATIENT
  Age: 74 Year
  Sex: Female

DRUGS (10)
  1. PACLITAXEL PTOTEIN-BOUND PARTICLES FOR INJECTABLE SUSPENSION [Concomitant]
     Dosage: UNK UNK, Q2WK
  2. LISINOPRIL [Concomitant]
     Dosage: 20 MG, QD
  3. TRIAMTERENE AND HYDROCHLOROTHIAZIDE [Concomitant]
  4. BEVACIZUMAB [Concomitant]
     Dosage: UNK UNK, Q2WK
  5. CEFUROXIME [Concomitant]
     Dosage: 500 MG, BID
  6. METRONIDAZOLE [Concomitant]
  7. ATENOLOL [Concomitant]
     Dosage: 50 MG, QD
  8. NPLATE [Suspect]
     Indication: IDIOPATHIC THROMBOCYTOPENIC PURPURA
     Dosage: 250 MUG, UNK
     Dates: start: 20090901
  9. NEUPOGEN [Concomitant]
     Dosage: 480 MUG, UNK
  10. FUROSEMIDE [Concomitant]
     Dosage: 20 MG, QD

REACTIONS (16)
  - URINARY TRACT INFECTION [None]
  - HEMIPARESIS [None]
  - RENAL FAILURE ACUTE [None]
  - DISEASE PROGRESSION [None]
  - HYPERKALAEMIA [None]
  - PETECHIAE [None]
  - DISORIENTATION [None]
  - WHITE BLOOD CELL COUNT DECREASED [None]
  - FLUID OVERLOAD [None]
  - SINUSITIS [None]
  - ECCHYMOSIS [None]
  - DEATH [None]
  - OEDEMA [None]
  - DIARRHOEA [None]
  - ASTHENIA [None]
  - DECREASED APPETITE [None]
